FAERS Safety Report 14433716 (Version 1)
Quarter: 2018Q1

REPORT INFORMATION
  Report Type: Spontaneous
  Country: US (occurrence: US)
  Receive Date: 20180124
  Receipt Date: 20180124
  Transmission Date: 20180509
  Serious: Yes (Other)
  Sender: FDA-Public Use
  Company Number: US-BAYER-2018-013726

PATIENT
  Age: 77 Year
  Sex: Male
  Weight: 74.97 kg

DRUGS (1)
  1. AFRIN ORIGINAL [Suspect]
     Active Substance: OXYMETAZOLINE HYDROCHLORIDE
     Dosage: UNK UNK, QD
     Route: 055
     Dates: start: 1988

REACTIONS (4)
  - Incorrect drug administration duration [Unknown]
  - Drug dependence [Unknown]
  - Product closure removal difficult [None]
  - Nasal discomfort [Unknown]

NARRATIVE: CASE EVENT DATE: 1988
